FAERS Safety Report 12060132 (Version 2)
Quarter: 2016Q1

REPORT INFORMATION
  Report Type: Spontaneous
  Country: FI (occurrence: FI)
  Receive Date: 20160210
  Receipt Date: 20160211
  Transmission Date: 20160526
  Serious: Yes (Death, Hospitalization)
  Sender: FDA-Public Use
  Company Number: FI-TEVA-633560ISR

PATIENT

DRUGS (3)
  1. BUPRENORPHIN [Suspect]
     Active Substance: BUPRENORPHINE
  2. TRAMADOL. [Suspect]
     Active Substance: TRAMADOL
  3. PREGABALIN. [Suspect]
     Active Substance: PREGABALIN

REACTIONS (1)
  - Ileus [Fatal]
